FAERS Safety Report 17002741 (Version 3)
Quarter: 2023Q1

REPORT INFORMATION
  Report Type: Spontaneous
  Country: US (occurrence: None)
  Receive Date: 20191107
  Receipt Date: 20230202
  Transmission Date: 20230418
  Serious: Yes (Death, Disabling, Other)
  Sender: FDA-Public Use
  Company Number: 2019SF56926

PATIENT
  Age: 568 Month
  Sex: Female
  Weight: 59 kg

DRUGS (15)
  1. PRILOSEC [Suspect]
     Active Substance: OMEPRAZOLE MAGNESIUM
     Indication: Dyspepsia
     Route: 048
     Dates: start: 2015, end: 2016
  2. PRILOSEC OTC [Suspect]
     Active Substance: OMEPRAZOLE MAGNESIUM
     Indication: Dyspepsia
     Route: 048
     Dates: start: 2010, end: 2018
  3. PRILOSEC OTC [Suspect]
     Active Substance: OMEPRAZOLE MAGNESIUM
     Indication: Dyspepsia
     Route: 048
     Dates: start: 2010
  4. OXYCODONE [Concomitant]
     Active Substance: OXYCODONE
     Dates: start: 201812
  5. PANTOPRAZOLE [Concomitant]
     Active Substance: PANTOPRAZOLE
     Dates: start: 201812
  6. ONDANSETRON [Concomitant]
     Active Substance: ONDANSETRON
     Dates: start: 201812
  7. CEPHALEXIN [Concomitant]
     Active Substance: CEPHALEXIN
     Dates: start: 201812
  8. PERCOCET [Concomitant]
     Active Substance: ACETAMINOPHEN\OXYCODONE HYDROCHLORIDE
     Dates: start: 2019, end: 2020
  9. ZOFRAN [Concomitant]
     Active Substance: ONDANSETRON HYDROCHLORIDE
     Dates: start: 2019, end: 2020
  10. PROMETHAZINE [Concomitant]
     Active Substance: PROMETHAZINE HYDROCHLORIDE
     Dates: start: 201902, end: 201904
  11. TUMS [Concomitant]
     Active Substance: CALCIUM CARBONATE
  12. ROLAIDS [Concomitant]
     Active Substance: CALCIUM CARBONATE\MAGNESIUM HYDROXIDE
  13. PEPTO-BISMOL [Concomitant]
     Active Substance: BISMUTH SUBSALICYLATE
  14. CLARITHROMYCIN [Concomitant]
     Active Substance: CLARITHROMYCIN
     Dates: start: 201812
  15. KEFLEX [Concomitant]
     Active Substance: CEPHALEXIN
     Dates: start: 2019, end: 2020

REACTIONS (2)
  - Adenocarcinoma gastric [Fatal]
  - Depression [Unknown]

NARRATIVE: CASE EVENT DATE: 20181201
